FAERS Safety Report 16074822 (Version 1)
Quarter: 2019Q1

REPORT INFORMATION
  Report Type: Report from Study
  Country: GB (occurrence: GB)
  Receive Date: 20190314
  Receipt Date: 20190314
  Transmission Date: 20190418
  Serious: Yes (Other)
  Sender: FDA-Public Use
  Company Number: PHHY2019GB058344

PATIENT
  Sex: Female

DRUGS (1)
  1. COSENTYX [Suspect]
     Active Substance: SECUKINUMAB
     Indication: PSORIASIS
     Dosage: 300 MG, Q4W
     Route: 058

REACTIONS (6)
  - Ear infection [Unknown]
  - Skin exfoliation [Unknown]
  - Erythema [Unknown]
  - Skin induration [Unknown]
  - Eructation [Unknown]
  - Psoriasis [Not Recovered/Not Resolved]
